FAERS Safety Report 4466648-3 (Version None)
Quarter: 2004Q3

REPORT INFORMATION
  Report Type: 
  Country: None (occurrence: None)
  Receive Date: 20040930
  Receipt Date: 20040920
  Transmission Date: 20050211
  Serious: Yes (Other)
  Sender: FDA-Public Use
  Company Number: 2004234520US

PATIENT
  Age: 63 Year
  Sex: Female

DRUGS (4)
  1. PROVERA [Suspect]
     Dates: start: 19900101, end: 19940101
  2. PREMPRO [Suspect]
     Dates: start: 19940628, end: 20020312
  3. ACTIVELLA (ESTRADIOL) [Suspect]
     Dates: start: 20030223, end: 20030315
  4. ACTIVELLA (NORETHISTERONE) [Suspect]

REACTIONS (1)
  - BREAST CANCER FEMALE [None]
